FAERS Safety Report 14609338 (Version 2)
Quarter: 2018Q1

REPORT INFORMATION
  Report Type: Spontaneous
  Country: FI (occurrence: FI)
  Receive Date: 20180307
  Receipt Date: 20180329
  Transmission Date: 20180509
  Serious: Yes (Disabling, Other)
  Sender: FDA-Public Use
  Company Number: FI-UCBSA-2018009041

PATIENT
  Age: 38 Year
  Sex: Male

DRUGS (3)
  1. SODIUM VALPROATE [Suspect]
     Active Substance: VALPROATE SODIUM
     Indication: TEMPORAL LOBE EPILEPSY
     Dosage: UNK
  2. LAMOTRIGINE. [Suspect]
     Active Substance: LAMOTRIGINE
     Indication: TEMPORAL LOBE EPILEPSY
     Dosage: UNK
  3. LEVETIRACETAM. [Suspect]
     Active Substance: LEVETIRACETAM
     Indication: TEMPORAL LOBE EPILEPSY
     Dosage: UNK

REACTIONS (11)
  - Snoring [Unknown]
  - Apnoea [Unknown]
  - Anxiety [Unknown]
  - Depressed mood [Unknown]
  - Irregular sleep phase [Unknown]
  - Sleep disorder [Unknown]
  - Nervousness [Unknown]
  - Middle insomnia [Unknown]
  - Terminal insomnia [Unknown]
  - Insomnia [Unknown]
  - Fatigue [Unknown]
